FAERS Safety Report 19358428 (Version 1)
Quarter: 2021Q2

REPORT INFORMATION
  Report Type: Spontaneous
  Country: CA (occurrence: CA)
  Receive Date: 20210531
  Receipt Date: 20210531
  Transmission Date: 20210717
  Serious: Yes (Other)
  Sender: FDA-Public Use
  Company Number: CA-JNJFOC-20210552676

PATIENT
  Age: 66 Year
  Sex: Male

DRUGS (1)
  1. INFLIXIMAB, RECOMBINANT [Suspect]
     Active Substance: INFLIXIMAB
     Indication: ANKYLOSING SPONDYLITIS
     Route: 042

REACTIONS (7)
  - Road traffic accident [Unknown]
  - Skin laceration [Unknown]
  - Myalgia [Unknown]
  - Concussion [Unknown]
  - Off label use [Unknown]
  - Scab [Unknown]
  - Eye haemorrhage [Unknown]
